FAERS Safety Report 6534263-3 (Version None)
Quarter: 2010Q1

REPORT INFORMATION
  Report Type: 
  Country: None (occurrence: None)
  Receive Date: 20100112
  Receipt Date: 20100108
  Transmission Date: 20100710
  Serious: Yes (Life-Threatening, Hospitalization)
  Sender: FDA-Public Use
  Company Number: PHHY2009BR41970

PATIENT
  Sex: Male

DRUGS (1)
  1. STALEVO 100 [Suspect]
     Indication: BASAL GANGLION DEGENERATION
     Dosage: 50/12,5/200, TWICE DAILY
     Route: 048
     Dates: start: 20090701

REACTIONS (4)
  - ACNE [None]
  - COMA [None]
  - DISEASE PROGRESSION [None]
  - RASH PAPULAR [None]
